FAERS Safety Report 5723348-7 (Version None)
Quarter: 2008Q2

REPORT INFORMATION
  Report Type: 
  Country: None (occurrence: None)
  Receive Date: 20080430
  Receipt Date: 20080423
  Transmission Date: 20081010
  Serious: Yes (Hospitalization)
  Sender: FDA-Public Use
  Company Number: FR-BAXTER-2008BH004257

PATIENT
  Age: 63 Year
  Sex: Male

DRUGS (2)
  1. ALBUMIN (HUMAN) [Suspect]
     Indication: DRUG USE FOR UNKNOWN INDICATION
     Route: 042
     Dates: start: 20080415, end: 20080415
  2. OCTAGAM [Suspect]
     Indication: DRUG USE FOR UNKNOWN INDICATION
     Route: 042
     Dates: start: 20080415, end: 20080415

REACTIONS (2)
  - RASH [None]
  - RESPIRATORY DISTRESS [None]
